FAERS Safety Report 24752133 (Version 3)
Quarter: 2024Q4

REPORT INFORMATION
  Report Type: Report from Study
  Country: SE (occurrence: SE)
  Receive Date: 20241219
  Receipt Date: 20241225
  Transmission Date: 20250115
  Serious: Yes (Other)
  Sender: ABBVIE
  Company Number: SE-ABBVIE-6049568

PATIENT
  Age: 76 Year
  Sex: Female

DRUGS (2)
  1. FOSCARBIDOPA\FOSLEVODOPA [Suspect]
     Active Substance: FOSCARBIDOPA\FOSLEVODOPA
     Indication: Parkinson^s disease
     Dosage: INCREASED BASE INFUSION RATE FROM 0.35 TO 0.37.
     Route: 058
     Dates: start: 20241126
  2. FOSCARBIDOPA\FOSLEVODOPA [Suspect]
     Active Substance: FOSCARBIDOPA\FOSLEVODOPA
     Dosage: CURRENT INFUSION RATES (ML/H): LOW 0.15, BASE 0.35, HIGH 0.37
     Route: 058
     Dates: start: 20241128

REACTIONS (11)
  - Loss of consciousness [Recovered/Resolved]
  - Memory impairment [Unknown]
  - Asthenia [Unknown]
  - Dysarthria [Unknown]
  - Cognitive disorder [Unknown]
  - General physical health deterioration [Unknown]
  - Fall [Recovered/Resolved]
  - Musculoskeletal disorder [Unknown]
  - Mobility decreased [Unknown]
  - Urinary tract infection [Recovered/Resolved]
  - Head injury [Recovered/Resolved]

NARRATIVE: CASE EVENT DATE: 20240101
